FAERS Safety Report 4918504-1 (Version None)
Quarter: 2006Q1

REPORT INFORMATION
  Report Type: 
  Country: None (occurrence: None)
  Receive Date: 20060214
  Receipt Date: 20060127
  Transmission Date: 20060701
  Serious: Yes (Hospitalization)
  Sender: FDA-Public Use
  Company Number: DE200601004935

PATIENT
  Age: 56 Year
  Sex: Female
  Weight: 61 kg

DRUGS (2)
  1. YENTREVE (DULOXETINE HYDROCHLORIDE) CAPSULE [Suspect]
     Indication: INCONTINENCE
     Dosage: 40 MG, 2/D, ORAL
     Route: 048
     Dates: start: 20050715, end: 20051222
  2. GYNOKADIN GEL (ESTRADIOL) [Concomitant]

REACTIONS (2)
  - FALL [None]
  - UPPER LIMB FRACTURE [None]
